FAERS Safety Report 6541829-3 (Version None)
Quarter: 2010Q1

REPORT INFORMATION
  Report Type: 
  Country: None (occurrence: None)
  Receive Date: 20100119
  Receipt Date: 20100113
  Transmission Date: 20100710
  Serious: Yes (Other)
  Sender: FDA-Public Use
  Company Number: PHEH2006US10590

PATIENT
  Sex: Female

DRUGS (4)
  1. FEMARA [Suspect]
     Indication: BREAST CANCER
     Dosage: 2.5 MG, QD
     Route: 048
     Dates: start: 20060821, end: 20060926
  2. FEMARA [Suspect]
     Dosage: 2.5 MG, QD
     Route: 048
     Dates: start: 20060401, end: 20070801
  3. FOSAMAX [Suspect]
     Dosage: 70 MG
     Dates: end: 20070801
  4. NAPROXEN [Concomitant]

REACTIONS (21)
  - ALOPECIA [None]
  - ARTHRALGIA [None]
  - ARTHRITIS [None]
  - ASTHENIA [None]
  - BACK PAIN [None]
  - BLOOD CHOLESTEROL INCREASED [None]
  - BONE PAIN [None]
  - CATARACT [None]
  - CONDITION AGGRAVATED [None]
  - FEELING HOT [None]
  - HAIR DISORDER [None]
  - HEADACHE [None]
  - HYPERTENSION [None]
  - MALAISE [None]
  - MEMORY IMPAIRMENT [None]
  - MYALGIA [None]
  - NAUSEA [None]
  - PRURITUS [None]
  - VASCULITIS [None]
  - VERTIGO [None]
  - VOMITING [None]
